FAERS Safety Report 11857642 (Version 1)
Quarter: 2015Q4

REPORT INFORMATION
  Report Type: Spontaneous
  Country: US (occurrence: None)
  Receive Date: 20151221
  Receipt Date: 20151221
  Transmission Date: 20160305
  Serious: No
  Sender: FDA-Public Use
  Company Number: None

PATIENT
  Age: 52 Year
  Sex: Female
  Weight: 61.24 kg

DRUGS (1)
  1. MIRVASO [Suspect]
     Active Substance: BRIMONIDINE TARTRATE
     Indication: ROSACEA
     Dosage: ONCE DAILY, APPLIED TO A SURFACE, USUALLY THE SKIN
     Dates: start: 20141201, end: 20151220

REACTIONS (3)
  - Erythema [None]
  - Vascular rupture [None]
  - Feeling hot [None]
